FAERS Safety Report 9693903 (Version 1)
Quarter: 2013Q4

REPORT INFORMATION
  Report Type: Spontaneous
  Country: DE (occurrence: None)
  Receive Date: 20131114
  Receipt Date: 20131114
  Transmission Date: 20140711
  Serious: Yes (Congenital Anomaly)
  Sender: FDA-Public Use
  Company Number: SYM-2013-12768

PATIENT
  Sex: Male

DRUGS (2)
  1. DERMATOP [Suspect]
     Indication: ECZEMA
     Dosage: TRANSPLACENTAL
     Route: 064
     Dates: start: 20120427
  2. FOLIC ACID (FOLIC ACID) (FOLIC ACID) [Concomitant]

REACTIONS (2)
  - Cleft lip and palate [None]
  - Maternal drugs affecting foetus [None]
